FAERS Safety Report 5560003-0 (Version None)
Quarter: 2007Q4

REPORT INFORMATION
  Report Type: 
  Country: None (occurrence: None)
  Receive Date: 20071214
  Receipt Date: 20071022
  Transmission Date: 20080405
  Serious: No
  Sender: FDA-Public Use
  Company Number: US-ABBOTT-07P-163-0422579-00

PATIENT
  Sex: Female
  Weight: 58.112 kg

DRUGS (15)
  1. HUMIRA [Suspect]
     Indication: CROHN'S DISEASE
     Route: 058
     Dates: start: 20071012, end: 20071012
  2. HUMIRA [Suspect]
     Route: 058
     Dates: start: 20071026, end: 20071026
  3. HUMIRA [Suspect]
  4. NORTRIPTYLINE HCL [Concomitant]
     Indication: DRUG USE FOR UNKNOWN INDICATION
     Route: 048
  5. SODIUM BICARBONATE [Concomitant]
     Indication: DRUG USE FOR UNKNOWN INDICATION
     Dosage: 1300MG THREE TIMES A DAY
     Route: 048
  6. AZATHIOPRINE [Concomitant]
     Indication: DRUG USE FOR UNKNOWN INDICATION
     Route: 048
  7. SERTRALINE [Concomitant]
     Indication: DEPRESSION
     Route: 048
  8. PANTOPRAZOLE SODIUM [Concomitant]
     Indication: GASTROOESOPHAGEAL REFLUX DISEASE
     Route: 048
  9. VENLAFAXIINE HCL [Concomitant]
     Indication: DEPRESSION
     Route: 048
  10. GABAPENTIN [Concomitant]
     Indication: PAIN IN EXTREMITY
     Route: 048
     Dates: start: 20071026
  11. GABAPENTIN [Concomitant]
  12. FOLBE TABLETS [Concomitant]
     Indication: DRUG USE FOR UNKNOWN INDICATION
     Route: 048
  13. RANITIDINE HYDROCHLORIDE [Concomitant]
     Indication: GASTROOESOPHAGEAL REFLUX DISEASE
     Route: 048
  14. RIZATRIPTAN BENZOATE [Concomitant]
     Indication: HEADACHE
  15. ACETAMINOPHEN [Concomitant]
     Indication: PAIN

REACTIONS (6)
  - BONE PAIN [None]
  - CYSTITIS [None]
  - EAR PAIN [None]
  - HEADACHE [None]
  - MUSCULOSKELETAL STIFFNESS [None]
  - NECK PAIN [None]
